FAERS Safety Report 9544012 (Version 1)
Quarter: 2013Q3

REPORT INFORMATION
  Report Type: Spontaneous
  Country: FR (occurrence: FR)
  Receive Date: 20130923
  Receipt Date: 20130923
  Transmission Date: 20140515
  Serious: Yes (Hospitalization)
  Sender: FDA-Public Use
  Company Number: FR-BAXTER-2013BAX036399

PATIENT
  Age: 49 Year
  Sex: Male

DRUGS (4)
  1. ENDOXAN 2000 MG, LYOPHILISAT POUR SOLUTION INJECTABLE [Suspect]
     Indication: STEM CELL TRANSPLANT
     Route: 042
     Dates: start: 20120803, end: 20120804
  2. MELPHALAN [Suspect]
     Indication: BONE MARROW CONDITIONING REGIMEN
     Dosage: 140 MG/M2
     Route: 065
     Dates: start: 20120724
  3. THIOTEPA [Suspect]
     Indication: BONE MARROW CONDITIONING REGIMEN
     Dosage: 10 MG/KG
     Route: 065
     Dates: start: 20120724
  4. FLUDARABINE [Suspect]
     Indication: BONE MARROW CONDITIONING REGIMEN
     Dosage: 40 MG/M2
     Route: 065
     Dates: start: 20120724

REACTIONS (2)
  - Myocarditis [Recovered/Resolved]
  - Ejection fraction decreased [Recovered/Resolved]
